FAERS Safety Report 4428422-3 (Version None)
Quarter: 2004Q3

REPORT INFORMATION
  Report Type: 
  Country: None (occurrence: None)
  Receive Date: 20040818
  Receipt Date: 20031113
  Transmission Date: 20050211
  Serious: Yes (Other)
  Sender: FDA-Public Use
  Company Number: PHFR2003GB04418

PATIENT
  Age: 56 Year
  Sex: Male
  Weight: 80 kg

DRUGS (8)
  1. CLOZARIL [Suspect]
     Indication: SCHIZOPHRENIA
     Dosage: 350 MG/DAY
     Route: 048
     Dates: start: 20031007
  2. CLOZARIL [Suspect]
     Dosage: 400 MG/DAY
     Route: 048
  3. CLOZARIL [Suspect]
     Dosage: 250MG/DAY
     Route: 048
  4. ALBUTEROL SULFATE [Concomitant]
     Indication: ASTHMA
     Dosage: 2 PUFFS/DAY
  5. BRICANYL [Concomitant]
     Indication: ASTHMA
     Dosage: 2 PUFFS
  6. FERROUS SULFATE TAB [Concomitant]
     Indication: IRON DEFICIENCY ANAEMIA
     Route: 048
     Dates: start: 20030822
  7. LORAZEPAM [Concomitant]
     Indication: AGITATION
     Dosage: 2MG PRN
     Route: 048
  8. FOLIC ACID [Concomitant]
     Indication: HYPOVITAMINOSIS
     Dosage: 5MG/DAY
     Route: 048

REACTIONS (6)
  - BUNDLE BRANCH BLOCK RIGHT [None]
  - DIZZINESS [None]
  - ELECTROCARDIOGRAM ABNORMAL [None]
  - EOSINOPHIL COUNT INCREASED [None]
  - QRS AXIS ABNORMAL [None]
  - SINUS TACHYCARDIA [None]
